FAERS Safety Report 6301367-X (Version None)
Quarter: 2009Q3

REPORT INFORMATION
  Report Type: 
  Country: None (occurrence: None)
  Receive Date: 20090805
  Receipt Date: 20090805
  Transmission Date: 20100115
  Serious: No
  Sender: FDA-Public Use
  Company Number: None

PATIENT
  Sex: Male
  Weight: 118.8424 kg

DRUGS (1)
  1. QUINIDINE GLUCONATE [Suspect]
     Indication: ATRIAL FIBRILLATION
     Dosage: 2 TABLETS, EVERY 12 HRS, PO
     Route: 048
     Dates: start: 20090421

REACTIONS (1)
  - PRODUCT CONTAMINATION [None]
